FAERS Safety Report 22208940 (Version 1)
Quarter: 2023Q2

REPORT INFORMATION
  Report Type: Spontaneous
  Country: US (occurrence: US)
  Receive Date: 20230413
  Receipt Date: 20230413
  Transmission Date: 20230722
  Serious: No
  Sender: FDA-Public Use
  Company Number: US-PFIZER INC-PV202300028922

PATIENT
  Age: 70 Year
  Sex: Male

DRUGS (1)
  1. INLYTA [Suspect]
     Active Substance: AXITINIB
     Indication: Epithelioid sarcoma
     Dosage: 5 MG

REACTIONS (5)
  - Off label use [Unknown]
  - Dysphonia [Unknown]
  - Myalgia [Unknown]
  - Diarrhoea [Unknown]
  - Balance disorder [Unknown]
